FAERS Safety Report 10067220 (Version 1)
Quarter: 2014Q2

REPORT INFORMATION
  Report Type: Spontaneous
  Country: US (occurrence: None)
  Receive Date: 20140407
  Receipt Date: 20140407
  Transmission Date: 20141212
  Serious: Yes (Hospitalization)
  Sender: FDA-Public Use
  Company Number: US-000889

PATIENT
  Sex: Female

DRUGS (14)
  1. GATTEX [Suspect]
     Indication: SHORT-BOWEL SYNDROME
     Dosage: STREN/VOLUM: 0.29 ML/ FREQU: ONCE A DAY
     Route: 058
     Dates: start: 20131129, end: 20140101
  2. CREON [Concomitant]
  3. OMEPRAZOLE [Concomitant]
  4. RANITIDINE [Concomitant]
  5. LYRICA [Concomitant]
  6. FENTANYL [Concomitant]
  7. PULMOCORTISON INY [Concomitant]
  8. FORTICAL [Concomitant]
  9. HYOSCYAMINE [Concomitant]
  10. PHENERGAN [Concomitant]
  11. LASIX [Concomitant]
  12. PROBIOTICS [Concomitant]
  13. CALCIUM [Concomitant]
  14. SOLUTIONS FOR PARENTERAL NUTRITION [Concomitant]

REACTIONS (10)
  - Fall [None]
  - Laceration [None]
  - Joint injury [None]
  - Dehydration [None]
  - Asthenia [None]
  - Nausea [None]
  - Weight decreased [None]
  - Vomiting [None]
  - Electrolyte imbalance [None]
  - Ureteric obstruction [None]
